FAERS Safety Report 13463501 (Version 1)
Quarter: 2017Q2

REPORT INFORMATION
  Report Type: Spontaneous
  Country: FR (occurrence: FR)
  Receive Date: 20170420
  Receipt Date: 20170420
  Transmission Date: 20170830
  Serious: Yes (Other)
  Sender: FDA-Public Use
  Company Number: FR-009507513-1704FRA005211

PATIENT
  Age: 53 Year
  Sex: Female

DRUGS (3)
  1. OESTRODOSE [Concomitant]
     Active Substance: ESTRADIOL
  2. ESTIMA (PROGESTERONE) [Concomitant]
  3. FOSAVANCE [Suspect]
     Active Substance: ALENDRONATE SODIUM\CHOLECALCIFEROL
     Indication: OSTEOPOROSIS
     Dosage: 1 DF, QW
     Route: 048
     Dates: start: 2014, end: 201702

REACTIONS (11)
  - Dyspnoea [Recovered/Resolved]
  - Limb discomfort [Recovered/Resolved]
  - Paraesthesia [Recovered/Resolved]
  - Pain [Recovered/Resolved]
  - Insomnia [Recovered/Resolved]
  - Sleep apnoea syndrome [Recovered/Resolved]
  - Arthralgia [Recovered/Resolved]
  - Abasia [Recovered/Resolved]
  - Throat tightness [Recovered/Resolved]
  - Fatigue [Recovered/Resolved]
  - Oesophageal stenosis [Recovered/Resolved]
